FAERS Safety Report 10186623 (Version 1)
Quarter: 2014Q2

REPORT INFORMATION
  Report Type: Report from Study
  Country: US (occurrence: US)
  Receive Date: 20140521
  Receipt Date: 20140521
  Transmission Date: 20141212
  Serious: Yes (Other)
  Sender: FDA-Public Use
  Company Number: US-BAXTER-2014BAX024682

PATIENT
  Age: 56 Year
  Sex: Female
  Weight: 70.3 kg

DRUGS (2)
  1. CYTOXAN (CYCLOPHOSPHAMIDE FOR INJECTION, USP)  1 GRAM VIAL (LYOPHILIZE [Suspect]
     Indication: PLASMA CELL MYELOMA
     Dosage: 500
     Route: 048
     Dates: start: 20131223
  2. VELCADE [Suspect]
     Indication: PLASMA CELL MYELOMA
     Dosage: 2.25
     Route: 058
     Dates: start: 20131223

REACTIONS (1)
  - Pneumonia [Not Recovered/Not Resolved]
